FAERS Safety Report 7260016-7 (Version None)
Quarter: 2011Q1

REPORT INFORMATION
  Report Type: 
  Country: None (occurrence: None)
  Receive Date: 20110130
  Receipt Date: 20101005
  Transmission Date: 20110831
  Serious: No
  Sender: FDA-Public Use
  Company Number: US-ABBOTT-10P-163-0676564-00

PATIENT
  Sex: Female
  Weight: 67.192 kg

DRUGS (3)
  1. INSULIN [Concomitant]
     Indication: TYPE 1 DIABETES MELLITUS
  2. HUMIRA [Suspect]
     Indication: ARTHRITIS
     Dates: start: 20100501
  3. SYMBICORT [Concomitant]
     Indication: ASTHMA
     Dosage: UNKNOWN

REACTIONS (2)
  - DEVICE MALFUNCTION [None]
  - INCORRECT ROUTE OF DRUG ADMINISTRATION [None]
